FAERS Safety Report 18741987 (Version 2)
Quarter: 2021Q1

REPORT INFORMATION
  Report Type: Spontaneous
  Country: US (occurrence: US)
  Receive Date: 20210114
  Receipt Date: 20210316
  Transmission Date: 20210419
  Serious: Yes (Hospitalization)
  Sender: FDA-Public Use
  Company Number: US-ELI_LILLY_AND_COMPANY-US202101002022

PATIENT
  Sex: Female
  Weight: 96 kg

DRUGS (5)
  1. BAMLANIVIMAB 700MG [Suspect]
     Active Substance: BAMLANIVIMAB
     Indication: COVID-19
     Dosage: 700 MG, SINGLE
     Route: 042
     Dates: start: 20201222, end: 20201222
  2. METOPROLOL SUCCINATE. [Concomitant]
     Active Substance: METOPROLOL SUCCINATE
  3. GABAPENTIN. [Concomitant]
     Active Substance: GABAPENTIN
  4. NITROGLYCERIN. [Concomitant]
     Active Substance: NITROGLYCERIN
  5. LOSARTAN. [Concomitant]
     Active Substance: LOSARTAN

REACTIONS (3)
  - COVID-19 pneumonia [Unknown]
  - Acute respiratory failure [Unknown]
  - Bacteraemia [Unknown]
